FAERS Safety Report 7658953-4 (Version None)
Quarter: 2011Q3

REPORT INFORMATION
  Report Type: 
  Country: None (occurrence: None)
  Receive Date: 20110805
  Receipt Date: 20110801
  Transmission Date: 20111222
  Serious: Yes (Death)
  Sender: FDA-Public Use
  Company Number: US-ABBOTT-11P-163-0841740-00

PATIENT
  Sex: Female

DRUGS (17)
  1. NEXIUM [Concomitant]
     Indication: GASTROOESOPHAGEAL REFLUX DISEASE
  2. VITAMIN D [Concomitant]
     Indication: VITAMIN SUPPLEMENTATION
  3. LEFLUNOMIDE [Concomitant]
     Indication: RHEUMATOID ARTHRITIS
  4. TOPROL-XL [Concomitant]
     Indication: HYPERTENSION
  5. LASIX [Concomitant]
     Indication: FLUID RETENTION
  6. AVAPRO [Concomitant]
     Indication: HYPERTENSION
  7. AMITRIPTYLINE HCL [Concomitant]
     Indication: DEPRESSION
  8. NITROGLYCERIN [Concomitant]
     Indication: CARDIAC DISORDER
  9. PROBENECID [Concomitant]
     Indication: ARTHRITIS
  10. VITRON C [Concomitant]
     Indication: VITAMIN SUPPLEMENTATION
  11. DESLORATADINE [Concomitant]
     Indication: ALLERGIC SINUSITIS
  12. LIPITOR [Concomitant]
     Indication: BLOOD CHOLESTEROL INCREASED
  13. WARFARIN SODIUM [Concomitant]
     Indication: ANTICOAGULANT THERAPY
  14. HUMIRA [Suspect]
     Indication: PSORIATIC ARTHROPATHY
     Route: 058
     Dates: start: 20090819, end: 20110715
  15. ALDACTONE [Concomitant]
     Indication: HYPERTENSION
  16. POTASSIUM CHLORIDE [Concomitant]
     Indication: MINERAL SUPPLEMENTATION
     Dosage: 10 MEQ
  17. VITRON C [Concomitant]
     Indication: MINERAL SUPPLEMENTATION

REACTIONS (4)
  - DEATH [None]
  - CHEST PAIN [None]
  - LUNG DISORDER [None]
  - HEART VALVE INCOMPETENCE [None]
